FAERS Safety Report 5384733-9 (Version None)
Quarter: 2007Q3

REPORT INFORMATION
  Report Type: 
  Country: None (occurrence: None)
  Receive Date: 20070711
  Receipt Date: 20070702
  Transmission Date: 20080115
  Serious: Yes (Other)
  Sender: FDA-Public Use
  Company Number: US-PFIZER INC-2007054489

PATIENT
  Sex: Male

DRUGS (2)
  1. NORVASC [Suspect]
  2. NORVASC [Suspect]

REACTIONS (1)
  - CEREBROVASCULAR ACCIDENT [None]
